FAERS Safety Report 11869282 (Version 1)
Quarter: 2015Q4

REPORT INFORMATION
  Report Type: Spontaneous
  Country: AR (occurrence: AR)
  Receive Date: 20151226
  Receipt Date: 20151226
  Transmission Date: 20160305
  Serious: Yes (Other)
  Sender: FDA-Public Use
  Company Number: PHHY2015AR162820

PATIENT
  Sex: Female

DRUGS (1)
  1. ZOMETA [Suspect]
     Active Substance: ZOLEDRONIC ACID
     Indication: OESTROGEN RECEPTOR POSITIVE BREAST CANCER
     Dosage: 4 MG, 1 YEARLY
     Route: 065

REACTIONS (24)
  - Metastases to spine [Unknown]
  - Aphonia [Unknown]
  - Sneezing [Unknown]
  - Metastases to bone [Not Recovered/Not Resolved]
  - Fatigue [Unknown]
  - Arthralgia [Not Recovered/Not Resolved]
  - Asthenia [Unknown]
  - Colitis [Recovering/Resolving]
  - Feeling abnormal [Unknown]
  - Rash [Unknown]
  - Cough [Unknown]
  - Dislocation of vertebra [Not Recovered/Not Resolved]
  - Gastrooesophageal reflux disease [Recovering/Resolving]
  - Hypersensitivity [Unknown]
  - Malaise [Unknown]
  - Road traffic accident [Unknown]
  - Pain [Not Recovered/Not Resolved]
  - Odynophagia [Not Recovered/Not Resolved]
  - Throat tightness [Unknown]
  - Dysgeusia [Unknown]
  - Vomiting [Unknown]
  - Dysphagia [Not Recovered/Not Resolved]
  - Inappropriate schedule of drug administration [Unknown]
  - Oesophagitis [Recovered/Resolved]

NARRATIVE: CASE EVENT DATE: 201507
